FAERS Safety Report 11921869 (Version 1)
Quarter: 2016Q1

REPORT INFORMATION
  Report Type: Spontaneous
  Country: US (occurrence: US)
  Receive Date: 20160115
  Receipt Date: 20160115
  Transmission Date: 20160526
  Serious: Yes (Hospitalization)
  Sender: FDA-Public Use
  Company Number: US-TEVA-625161USA

PATIENT
  Age: 28 Year
  Sex: Male

DRUGS (1)
  1. NAPROXEN. [Suspect]
     Active Substance: NAPROXEN
     Indication: SUICIDE ATTEMPT
     Dosage: 70.4G
     Route: 048

REACTIONS (8)
  - Hypotension [Recovered/Resolved]
  - Suicide attempt [Recovered/Resolved]
  - Sinus tachycardia [Recovered/Resolved]
  - Intentional overdose [Recovered/Resolved]
  - Encephalopathy [Recovered/Resolved]
  - Metabolic acidosis [Recovered/Resolved]
  - Seizure [Recovered/Resolved]
  - Renal tubular necrosis [Recovered/Resolved]
